FAERS Safety Report 21955202 (Version 1)
Quarter: 2023Q1

REPORT INFORMATION
  Report Type: Spontaneous
  Country: US (occurrence: US)
  Receive Date: 20230206
  Receipt Date: 20230206
  Transmission Date: 20230418
  Serious: No
  Sender: FDA-Public Use
  Company Number: US-BEH-2023154768

PATIENT
  Age: 67 Year
  Sex: Female

DRUGS (2)
  1. HIZENTRA [Suspect]
     Active Substance: HUMAN IMMUNOGLOBULIN G
     Indication: Polymyositis
     Dosage: 12 GRAM, QW
     Route: 058
     Dates: start: 20230105
  2. HIZENTRA [Suspect]
     Active Substance: HUMAN IMMUNOGLOBULIN G
     Dosage: UNK
     Route: 065
     Dates: start: 20230119

REACTIONS (12)
  - Chest discomfort [Unknown]
  - Rash [Unknown]
  - Rash [Unknown]
  - Rash [Unknown]
  - Wheezing [Unknown]
  - No adverse event [Unknown]
  - Off label use [Unknown]
  - Sinus congestion [Unknown]
  - Ear congestion [Unknown]
  - Chest discomfort [Unknown]
  - Tongue pruritus [Unknown]
  - Pruritus [Unknown]

NARRATIVE: CASE EVENT DATE: 20230106
